FAERS Safety Report 15135262 (Version 1)
Quarter: 2018Q3

REPORT INFORMATION
  Report Type: Spontaneous
  Country: ZA (occurrence: ZA)
  Receive Date: 20180712
  Receipt Date: 20180712
  Transmission Date: 20181010
  Serious: Yes (Death)
  Sender: FDA-Public Use
  Company Number: ZA-DRREDDYS-SAF/SAF/18/0101804

PATIENT
  Sex: Female

DRUGS (9)
  1. ECOTRIN [Suspect]
     Active Substance: ASPIRIN
     Indication: ANTICOAGULANT THERAPY
     Route: 048
  2. DOPAQUEL [Suspect]
     Active Substance: QUETIAPINE
     Route: 048
  3. DOPAQUEL [Suspect]
     Active Substance: QUETIAPINE
     Indication: DEPRESSION
     Route: 048
  4. PREXUM [Suspect]
     Active Substance: PERINDOPRIL ERBUMINE
     Indication: HYPERTENSION
     Route: 048
  5. CELEBREX [Suspect]
     Active Substance: CELECOXIB
     Indication: PAIN
     Route: 048
  6. PURESIS [Suspect]
     Active Substance: FUROSEMIDE
     Indication: DIURETIC THERAPY
     Route: 048
  7. DONECEPT [Suspect]
     Active Substance: DONEPEZIL HYDROCHLORIDE
     Indication: DEMENTIA
     Route: 048
  8. TREPILINE [Suspect]
     Active Substance: AMITRIPTYLINE
     Indication: STRESS
     Route: 048
  9. SERDEP (SERTRALINE HYDROCHLORIDE) [Suspect]
     Active Substance: SERTRALINE HYDROCHLORIDE
     Indication: DEPRESSION
     Route: 048

REACTIONS (1)
  - Death [Fatal]
